FAERS Safety Report 8153021-X (Version None)
Quarter: 2012Q1

REPORT INFORMATION
  Report Type: 
  Country: None (occurrence: None)
  Receive Date: 20120221
  Receipt Date: 20120217
  Transmission Date: 20120608
  Serious: Yes (Other)
  Sender: FDA-Public Use
  Company Number: DE-SANOFI-AVENTIS-2012SA010578

PATIENT
  Sex: Male

DRUGS (2)
  1. ARAVA [Suspect]
     Route: 065
  2. ETANERCEPT [Concomitant]

REACTIONS (2)
  - GAIT DISTURBANCE [None]
  - PERONEAL NERVE PALSY [None]
